FAERS Safety Report 15649187 (Version 5)
Quarter: 2023Q2

REPORT INFORMATION
  Report Type: Report from Study
  Country: US (occurrence: US)
  Receive Date: 20181122
  Receipt Date: 20230406
  Transmission Date: 20230721
  Serious: Yes (Hospitalization, Other)
  Sender: FDA-Public Use
  Company Number: US-ACADIA PHARMACEUTICALS INC.-ACA-2018-010266

PATIENT
  Age: 68 Year
  Sex: Female
  Weight: 47 kg

DRUGS (20)
  1. NUPLAZID [Suspect]
     Active Substance: PIMAVANSERIN TARTRATE
     Indication: Parkinson^s disease psychosis
     Dosage: 34 MG, QD
     Route: 048
     Dates: start: 20180906
  2. NUPLAZID [Suspect]
     Active Substance: PIMAVANSERIN TARTRATE
     Indication: Delusion
  3. NUPLAZID [Suspect]
     Active Substance: PIMAVANSERIN TARTRATE
     Indication: Parkinson^s disease psychosis
  4. INBRIJA [Suspect]
     Active Substance: LEVODOPA
     Dosage: UNK
  5. ROPINIROLE HYDROCHLORIDE [Concomitant]
     Active Substance: ROPINIROLE HYDROCHLORIDE
     Dosage: 4MG/FOUR TIMES A DAY
  6. CARBIDOPA\LEVODOPA [Concomitant]
     Active Substance: CARBIDOPA\LEVODOPA
     Dosage: 25/100MG/1 TABLET FOUR TIMES A DAY
  7. BENZTROPINE MESYLATE [Concomitant]
     Active Substance: BENZTROPINE MESYLATE
     Dosage: 0.5 MG, BID
  8. ENTACAPONE [Concomitant]
     Active Substance: ENTACAPONE
     Dosage: 200 MG, 4 TIMES A DAY
  9. SIMVASTATIN [Concomitant]
     Active Substance: SIMVASTATIN
     Dosage: 20 MG, QD
  10. FERROUS SULFATE [Concomitant]
     Active Substance: FERROUS SULFATE
     Dosage: 325(65MG) /TABLET /ONCE DAY
  11. OMEPRAZOLE [Concomitant]
     Active Substance: OMEPRAZOLE
     Dosage: 20 MG, QD
  12. METOPROLOL SUCCINATE [Concomitant]
     Active Substance: METOPROLOL SUCCINATE
     Dosage: 50 MG, QD
  13. LORAZEPAM [Concomitant]
     Active Substance: LORAZEPAM
  14. VITAMIN D3 [Concomitant]
     Active Substance: CHOLECALCIFEROL
  15. MIRTAZAPINE [Concomitant]
     Active Substance: MIRTAZAPINE
  16. ALLERGY SINUS [Concomitant]
  17. VITAMINS NOS [Concomitant]
     Active Substance: VITAMINS
  18. VITAMIN C [Concomitant]
     Active Substance: ASCORBIC ACID
  19. NITROFURANTOIN [Concomitant]
     Active Substance: NITROFURANTOIN
  20. QUETIAPINE [Concomitant]
     Active Substance: QUETIAPINE

REACTIONS (7)
  - Hip fracture [Unknown]
  - Fall [Unknown]
  - Osteoporosis [Unknown]
  - Adverse drug reaction [Unknown]
  - Cough [Unknown]
  - Hallucination [Not Recovered/Not Resolved]
  - Drug ineffective [Unknown]

NARRATIVE: CASE EVENT DATE: 20180901
